FAERS Safety Report 5115756-2 (Version None)
Quarter: 2006Q3

REPORT INFORMATION
  Report Type: 
  Country: None (occurrence: None)
  Receive Date: 20060927
  Receipt Date: 20060915
  Transmission Date: 20061208
  Serious: Yes (Hospitalization)
  Sender: FDA-Public Use
  Company Number: ES-ROCHE-463295

PATIENT
  Age: 77 Year
  Sex: Male

DRUGS (9)
  1. TICLOPIDINE HCL [Suspect]
     Route: 065
     Dates: start: 19960415
  2. TICLOPIDINE HCL [Suspect]
     Dosage: WEEK FOLLOWING ADMISSION.
     Route: 065
  3. TICLOPIDINE HCL [Suspect]
     Dosage: DOSE INCREASED A FORTNIGHT LATER OWING TO VERTEBROBASILAR STROKE WITH INTERNUCLEAR OPHTALMOPLEGIA A+
     Route: 065
  4. PHENYTOIN [Interacting]
     Route: 065
  5. PHENYTOIN [Interacting]
     Route: 065
  6. PHENYTOIN [Interacting]
     Route: 065
  7. ASPIRIN [Concomitant]
     Indication: MYOCARDIAL INFARCTION
  8. PROPRANOLOL [Concomitant]
     Indication: MYOCARDIAL INFARCTION
  9. NIFEDIPINE [Concomitant]
     Indication: MYOCARDIAL INFARCTION

REACTIONS (2)
  - DRUG INTERACTION [None]
  - DRUG TOXICITY [None]
